FAERS Safety Report 6189965-8 (Version None)
Quarter: 2009Q2

REPORT INFORMATION
  Report Type: 
  Country: None (occurrence: None)
  Receive Date: 20090514
  Receipt Date: 20090506
  Transmission Date: 20091009
  Serious: Yes (Hospitalization, Other)
  Sender: FDA-Public Use
  Company Number: PHEH2009US02553

PATIENT
  Sex: Female

DRUGS (8)
  1. ZELNORM [Suspect]
     Indication: GASTROINTESTINAL HYPOMOTILITY
     Dosage: 6 MG, BID
     Route: 048
     Dates: start: 20060801, end: 20090301
  2. ZELNORM [Suspect]
     Dosage: NO TREATMENT
  3. ZELNORM [Suspect]
  4. CYPROHEPTADINE HCL [Concomitant]
     Indication: DECREASED APPETITE
     Dosage: 6 ML, BID
     Route: 048
  5. CALCIUM CITRATE [Concomitant]
     Indication: BLOOD CALCIUM DECREASED
     Dosage: 2 PILLS, BID
     Route: 048
  6. MAGNESIUM CHLORIDE [Concomitant]
     Indication: BLOOD MAGNESIUM DECREASED
     Dosage: 2 TABS, BID
     Route: 048
  7. CHROMIUM PICOLINATE [Concomitant]
     Indication: BLOOD CHROMIUM DECREASED
     Dosage: 400 MG, QD
     Route: 048
  8. STRATTERA [Concomitant]
     Indication: ATTENTION DEFICIT/HYPERACTIVITY DISORDER
     Dosage: 60 MG, QD
     Route: 048

REACTIONS (8)
  - CATHETER SEPSIS [None]
  - CENTRAL LINE INFECTION [None]
  - DEEP VEIN THROMBOSIS [None]
  - ILEOSTOMY [None]
  - INTESTINAL PERFORATION [None]
  - INTESTINAL RESECTION [None]
  - LAPAROTOMY [None]
  - THROMBOPHLEBITIS SUPERFICIAL [None]
